FAERS Safety Report 12497326 (Version 1)
Quarter: 2016Q2

REPORT INFORMATION
  Report Type: Spontaneous
  Country: US (occurrence: US)
  Receive Date: 20160624
  Receipt Date: 20160624
  Transmission Date: 20160815
  Serious: Yes (Hospitalization)
  Sender: FDA-Public Use
  Company Number: US-BAYER-2016-117199

PATIENT
  Age: 29 Year
  Sex: Female

DRUGS (8)
  1. ALEVE [Suspect]
     Active Substance: NAPROXEN SODIUM
     Indication: BACK PAIN
     Dosage: 6 DF, ONCE
     Dates: start: 20160613, end: 20160613
  2. DEPAKOTE [Concomitant]
     Active Substance: DIVALPROEX SODIUM
  3. ALEVE [Suspect]
     Active Substance: NAPROXEN SODIUM
     Indication: BACK PAIN
     Dosage: 8 DF, ONCE
     Dates: start: 20160613, end: 20160613
  4. SEROQUEL [Concomitant]
     Active Substance: QUETIAPINE FUMARATE
  5. DILANTIN [Concomitant]
     Active Substance: PHENYTOIN
  6. HYDROCODONE [Concomitant]
     Active Substance: HYDROCODONE
     Indication: PAIN
     Dosage: UNK UNK, PRN
  7. ALEVE [Suspect]
     Active Substance: NAPROXEN SODIUM
     Indication: BACK PAIN
     Dosage: TOOK AT MOST 18 - 19 ALEVE (IN TOTAL)
     Dates: start: 20160613, end: 20160613
  8. KLONOPIN [Concomitant]
     Active Substance: CLONAZEPAM

REACTIONS (6)
  - Mental disorder [None]
  - Intentional product misuse [None]
  - Hallucination [None]
  - Nausea [Recovered/Resolved]
  - Asthenia [None]
  - Vomiting [Recovered/Resolved]

NARRATIVE: CASE EVENT DATE: 20160613
